FAERS Safety Report 9900806 (Version 1)
Quarter: 2014Q1

REPORT INFORMATION
  Report Type: Spontaneous
  Country: GB (occurrence: GB)
  Receive Date: 20140217
  Receipt Date: 20140217
  Transmission Date: 20141002
  Serious: Yes (Other)
  Sender: FDA-Public Use
  Company Number: GB-DRREDDYS-GER/UKI/14/0038105

PATIENT
  Sex: Male

DRUGS (4)
  1. SERTRALINE [Suspect]
     Indication: PRODUCT USED FOR UNKNOWN INDICATION
  2. ZISPIN [Suspect]
     Indication: PRODUCT USED FOR UNKNOWN INDICATION
     Route: 048
     Dates: end: 20140130
  3. LITHIUM [Concomitant]
     Indication: PRODUCT USED FOR UNKNOWN INDICATION
  4. OLANZAPINE [Concomitant]
     Indication: PRODUCT USED FOR UNKNOWN INDICATION

REACTIONS (3)
  - Dysphagia [Recovered/Resolved]
  - Gastrectomy [Unknown]
  - Gastrointestinal disorder [Unknown]
